FAERS Safety Report 9734334 (Version 2)
Quarter: 2013Q4

REPORT INFORMATION
  Report Type: Spontaneous
  Country: JP (occurrence: JP)
  Receive Date: 20131206
  Receipt Date: 20131209
  Transmission Date: 20140711
  Serious: Yes (Other)
  Sender: FDA-Public Use
  Company Number: JP-009507513-1312JPN000142

PATIENT
  Sex: 0

DRUGS (4)
  1. MENESIT TABLETS - 100 [Suspect]
     Dosage: OFTEN ADMINISTERED 400MG A DAY
     Route: 048
     Dates: start: 201011
  2. MENESIT TABLETS - 100 [Suspect]
     Dosage: 100MG IN THE MORING AND 100MG IN THE EVENING
     Route: 048
  3. FP (SELEGILINE HYDROCHLORIDE) [Concomitant]
     Dosage: DAILY DOSAGE UNKNOWN, FORMULATION: POR
     Route: 048
  4. DOPS [Concomitant]
     Indication: PARKINSON^S DISEASE
     Dosage: DAILY DOSAGE UNKNOWN, FORMULATION: POR
     Route: 048

REACTIONS (3)
  - Hydrocephalus [Recovering/Resolving]
  - Surgery [Unknown]
  - Abdominal discomfort [Unknown]
